FAERS Safety Report 11405452 (Version 1)
Quarter: 2015Q3

REPORT INFORMATION
  Report Type: Spontaneous
  Country: KR (occurrence: KR)
  Receive Date: 20150821
  Receipt Date: 20150821
  Transmission Date: 20151125
  Serious: Yes (Death, Hospitalization, Other)
  Sender: FDA-Public Use
  Company Number: KR-BAYER-2015-399547

PATIENT
  Age: 55 Year
  Sex: Male

DRUGS (2)
  1. TENOFOVIR [Concomitant]
     Active Substance: TENOFOVIR
     Dosage: 400 MG, BID
  2. NEXAVAR [Suspect]
     Active Substance: SORAFENIB
     Indication: HEPATOCELLULAR CARCINOMA
     Dosage: 400 MG, BID

REACTIONS (14)
  - Blood uric acid increased [Fatal]
  - Hepatic necrosis [None]
  - Aspartate aminotransferase increased [Fatal]
  - Dyspnoea [None]
  - Pulmonary embolism [None]
  - Tumour thrombosis [None]
  - Alanine aminotransferase increased [Fatal]
  - Blood lactate dehydrogenase increased [Fatal]
  - Blood bilirubin increased [Fatal]
  - Urine output decreased [Fatal]
  - Asthenia [None]
  - Blood creatinine increased [Fatal]
  - Blood potassium increased [Fatal]
  - Tumour lysis syndrome [Fatal]
